FAERS Safety Report 13181028 (Version 1)
Quarter: 2017Q1

REPORT INFORMATION
  Report Type: Spontaneous
  Country: US (occurrence: US)
  Receive Date: 20170202
  Receipt Date: 20170202
  Transmission Date: 20170428
  Serious: No
  Sender: FDA-Public Use
  Company Number: US-SMITH AND NEPHEW, INC-2016SMT00741

PATIENT
  Sex: Male
  Weight: 99.77 kg

DRUGS (1)
  1. REGRANEX [Suspect]
     Active Substance: BECAPLERMIN
     Indication: DECUBITUS ULCER
     Dosage: UNK, 1X/DAY
     Route: 061
     Dates: start: 20160728, end: 2016

REACTIONS (2)
  - Off label use [Unknown]
  - Application site discolouration [Unknown]

NARRATIVE: CASE EVENT DATE: 2016
